FAERS Safety Report 6474242-8 (Version None)
Quarter: 2009Q4

REPORT INFORMATION
  Report Type: 
  Country: None (occurrence: None)
  Receive Date: 20091204
  Receipt Date: 20091124
  Transmission Date: 20100525
  Serious: Yes (Other)
  Sender: FDA-Public Use
  Company Number: PHNR2008AU00486

PATIENT
  Sex: Female

DRUGS (5)
  1. CLOZARIL [Suspect]
     Indication: SCHIZOPHRENIA
     Dosage: 12.5 MG - 475 MG DAILY
     Route: 048
     Dates: start: 20030827, end: 20050608
  2. EPILIM [Concomitant]
  3. RISPERIDONE [Concomitant]
  4. AMISULPRIDE [Concomitant]
  5. VALPROATE SODIUM [Concomitant]

REACTIONS (10)
  - ABNORMAL BEHAVIOUR [None]
  - ANTIPSYCHOTIC DRUG LEVEL INCREASED [None]
  - BLOOD COUNT ABNORMAL [None]
  - COGNITIVE DISORDER [None]
  - DELUSION [None]
  - DEPRESSION [None]
  - MALAISE [None]
  - NEUTROPENIA [None]
  - PSYCHOTIC DISORDER [None]
  - WHITE BLOOD CELL COUNT DECREASED [None]
